FAERS Safety Report 7538540-9 (Version None)
Quarter: 2011Q2

REPORT INFORMATION
  Report Type: 
  Country: None (occurrence: None)
  Receive Date: 20110610
  Receipt Date: 20110603
  Transmission Date: 20111010
  Serious: Yes (Hospitalization, Disabling)
  Sender: FDA-Public Use
  Company Number: DE-BIOGENIDEC-2011BI020646

PATIENT
  Age: 41 Year
  Sex: Female
  Weight: 58 kg

DRUGS (36)
  1. EMBOLEX [Concomitant]
     Route: 058
     Dates: start: 20090814, end: 20090814
  2. GABAPENTINE [Concomitant]
     Route: 048
     Dates: start: 20090610, end: 20090612
  3. GABAPENTINE [Concomitant]
     Route: 048
     Dates: start: 20090620, end: 20090814
  4. SULFAMETHOXAZOLE [Concomitant]
     Indication: PROPHYLAXIS
  5. ZOLPIDEM [Concomitant]
     Indication: INSOMNIA
     Route: 048
     Dates: start: 20090318, end: 20090322
  6. PREDNISOLONE [Concomitant]
     Route: 042
     Dates: start: 20090417, end: 20090418
  7. AMITRIPTYLINE HCL [Concomitant]
     Indication: ANALGESIC THERAPY
     Route: 048
     Dates: start: 20090516, end: 20090501
  8. EMBOLEX [Concomitant]
     Route: 058
     Dates: start: 20090527, end: 20090530
  9. NOVALGIN [Concomitant]
     Indication: ANALGESIC THERAPY
     Route: 048
     Dates: start: 20090607, end: 20090623
  10. FENISTIL [Concomitant]
     Indication: PROPHYLAXIS
     Route: 042
     Dates: start: 20090403, end: 20090403
  11. PREGABALIN [Concomitant]
     Indication: ANALGESIC THERAPY
     Route: 048
     Dates: start: 20090511, end: 20090515
  12. EMBOLEX [Concomitant]
     Indication: THROMBOSIS PROPHYLAXIS
     Route: 058
     Dates: start: 20090504, end: 20090515
  13. EMBOLEX [Concomitant]
     Route: 058
     Dates: start: 20090602, end: 20090623
  14. EMBOLEX [Concomitant]
     Route: 058
     Dates: start: 20090714, end: 20090717
  15. GABAPENTINE [Concomitant]
     Route: 048
     Dates: start: 20090616, end: 20090619
  16. SULFAMETHOXAZOLE [Concomitant]
     Route: 048
     Dates: start: 20090623, end: 20091001
  17. ACETAMINOPHEN [Concomitant]
     Indication: ANALGESIC THERAPY
     Route: 048
     Dates: start: 20090318, end: 20090323
  18. PREDNISOLONE [Concomitant]
     Indication: PROPHYLAXIS
     Route: 042
     Dates: start: 20090403, end: 20090403
  19. GABAPENTINE [Concomitant]
     Indication: ANALGESIC THERAPY
     Route: 048
     Dates: start: 20090527, end: 20090602
  20. TRIMETHOPRIM [Concomitant]
     Indication: PROPHYLAXIS
  21. TRIMETHOPRIM [Concomitant]
     Route: 048
     Dates: start: 20090623, end: 20091001
  22. GABAPENTINE [Concomitant]
     Route: 048
     Dates: start: 20090613, end: 20090615
  23. GABAPENTINE [Concomitant]
     Route: 048
     Dates: start: 20090801, end: 20091216
  24. PANTOPRAZOLE [Concomitant]
     Indication: GASTRITIS PROPHYLAXIS
     Route: 048
     Dates: start: 20090814, end: 20090814
  25. OMEPRAZOLE [Concomitant]
     Route: 048
     Dates: start: 20090828, end: 20090930
  26. PREDNISOLONE [Concomitant]
     Route: 042
     Dates: start: 20090409, end: 20090410
  27. GABAPENTINE [Concomitant]
     Route: 048
     Dates: start: 20090603, end: 20090609
  28. TYSABRI [Suspect]
     Indication: MULTIPLE SCLEROSIS
     Route: 042
     Dates: start: 20080526, end: 20090203
  29. PREDNISONE [Concomitant]
     Indication: NEUROMYELITIS OPTICA
     Route: 048
     Dates: start: 20090313, end: 20090314
  30. ACETAMINOPHEN [Concomitant]
     Route: 048
     Dates: start: 20090506, end: 20090506
  31. FENISTIL [Concomitant]
     Route: 042
     Dates: start: 20090409, end: 20090410
  32. KEVATRIL [Concomitant]
     Indication: PROPHYLAXIS OF NAUSEA AND VOMITING
     Route: 042
     Dates: start: 20090814, end: 20090814
  33. OMEPRAZOLE [Concomitant]
     Indication: GASTRITIS PROPHYLAXIS
     Route: 048
     Dates: start: 20090615, end: 20090623
  34. PREDNISONE [Concomitant]
     Route: 048
     Dates: start: 20090315, end: 20090316
  35. ACETAMINOPHEN [Concomitant]
     Route: 042
     Dates: start: 20090403, end: 20090403
  36. FENISTIL [Concomitant]
     Route: 042
     Dates: start: 20090417, end: 20090418

REACTIONS (1)
  - INVESTIGATION [None]
